FAERS Safety Report 17544881 (Version 1)
Quarter: 2020Q1

REPORT INFORMATION
  Report Type: Spontaneous
  Country: US (occurrence: US)
  Receive Date: 20200316
  Receipt Date: 20200316
  Transmission Date: 20200409
  Serious: No
  Sender: FDA-Public Use
  Company Number: US-VERTEX PHARMACEUTICALS-2020-005031

PATIENT
  Age: 37 Year
  Sex: Female
  Weight: 56 kg

DRUGS (22)
  1. MIRALAX [Concomitant]
     Active Substance: POLYETHYLENE GLYCOL 3350
  2. SINGULAIR [Concomitant]
     Active Substance: MONTELUKAST SODIUM
  3. OXAZEPAM. [Concomitant]
     Active Substance: OXAZEPAM
  4. TYLENOL [Concomitant]
     Active Substance: ACETAMINOPHEN
  5. PORTIA 21 [Concomitant]
     Dosage: 0.15-0.03
  6. ZENPEP [Concomitant]
     Active Substance: PANCRELIPASE AMYLASE\PANCRELIPASE LIPASE\PANCRELIPASE PROTEASE
     Dosage: 10-32-42K
  7. CULTURELLE [Concomitant]
     Active Substance: LACTOBACILLUS RHAMNOSUS
     Dosage: 10B--200 MD SPRINK
  8. CAYSTON [Concomitant]
     Active Substance: AZTREONAM
     Dosage: VIAL NEB
  9. TRIKAFTA [Suspect]
     Active Substance: ELEXACAFTOR\IVACAFTOR\TEZACAFTOR
     Indication: CYSTIC FIBROSIS
     Dosage: 2 TAB (ELEXACAFTOR 100MG/ TEZACAFTOR 50MG/ IVACAFTOR 75MG) AM, 1 TAB (IVACAFTOR 150MG) PM
     Route: 048
     Dates: start: 20200229
  10. VITAMIN D [COLECALCIFEROL] [Concomitant]
     Active Substance: CHOLECALCIFEROL
     Dosage: 400 UNIT
  11. CALCIUM 500+D [Concomitant]
     Active Substance: CALCIUM\VITAMIN D
  12. ALBUTEROL SULFATE. [Concomitant]
     Active Substance: ALBUTEROL SULFATE
  13. IBUPROFEN. [Concomitant]
     Active Substance: IBUPROFEN
     Dosage: POWDER
  14. AZITHROMYCIN ANHYDROUS. [Concomitant]
     Active Substance: AZITHROMYCIN ANHYDROUS
  15. PROTONIX [OMEPRAZOLE] [Concomitant]
     Active Substance: OMEPRAZOLE
  16. PULMOZYME [Concomitant]
     Active Substance: DORNASE ALFA
  17. QVAR REDIHALER [Concomitant]
     Active Substance: BECLOMETHASONE DIPROPIONATE
     Dosage: HFA AEROBA
  18. LAMICTAL [Concomitant]
     Active Substance: LAMOTRIGINE
  19. ALLEGRA ALLERGY [Concomitant]
     Active Substance: FEXOFENADINE HYDROCHLORIDE
  20. POTASSIUM 99 [Concomitant]
  21. KRILL OIL [Concomitant]
     Active Substance: DIETARY SUPPLEMENT\KRILL OIL
     Dosage: 1000-130 MG
  22. RIBOFLAVIN [Concomitant]
     Active Substance: RIBOFLAVIN

REACTIONS (1)
  - Productive cough [Not Recovered/Not Resolved]

NARRATIVE: CASE EVENT DATE: 20200229
